FAERS Safety Report 12823271 (Version 2)
Quarter: 2016Q4

REPORT INFORMATION
  Report Type: Spontaneous
  Country: JP (occurrence: JP)
  Receive Date: 20161007
  Receipt Date: 20161014
  Transmission Date: 20170207
  Serious: Yes (Other)
  Sender: FDA-Public Use
  Company Number: PHJP2016JP028524

PATIENT
  Age: 76 Year
  Sex: Male

DRUGS (2)
  1. PAZOPANIB [Suspect]
     Active Substance: PAZOPANIB
     Indication: UNDIFFERENTIATED SARCOMA
     Dosage: 400 MG, UNK
     Route: 048
     Dates: start: 201602
  2. PAZOPANIB [Suspect]
     Active Substance: PAZOPANIB
     Indication: METASTASES TO LUNG

REACTIONS (3)
  - Thrombotic microangiopathy [Unknown]
  - Platelet count decreased [Unknown]
  - Nephrotic syndrome [Recovering/Resolving]
